FAERS Safety Report 10053476 (Version 1)
Quarter: 2014Q2

REPORT INFORMATION
  Report Type: Spontaneous
  Country: US (occurrence: US)
  Receive Date: 20140402
  Receipt Date: 20140402
  Transmission Date: 20141212
  Serious: No
  Sender: FDA-Public Use
  Company Number: US-009507513-1404USA000415

PATIENT
  Age: 64 Year
  Sex: Female

DRUGS (2)
  1. DULERA [Suspect]
     Indication: COUGH
     Dosage: 100/5 MCG TWO PUFF TWICE
     Route: 055
     Dates: start: 201203
  2. VENTOLIN (ALBUTEROL) [Concomitant]

REACTIONS (3)
  - Bronchitis [Not Recovered/Not Resolved]
  - Drug dose omission [Unknown]
  - Product quality issue [Unknown]
